FAERS Safety Report 11589017 (Version 1)
Quarter: 2015Q4

REPORT INFORMATION
  Report Type: Spontaneous
  Country: JP (occurrence: JP)
  Receive Date: 20151002
  Receipt Date: 20151002
  Transmission Date: 20160304
  Serious: Yes (Hospitalization)
  Sender: FDA-Public Use
  Company Number: JP-TEVA-2015-JP-001931J

PATIENT
  Age: 43 Year
  Sex: Male

DRUGS (1)
  1. SAXIZON [Suspect]
     Active Substance: HYDROCORTISONE SODIUM SUCCINATE
     Indication: PRODUCT USED FOR UNKNOWN INDICATION
     Route: 065
     Dates: start: 201401, end: 201401

REACTIONS (1)
  - Anaphylactoid shock [Unknown]
